FAERS Safety Report 9269490 (Version 1)
Quarter: 2013Q2

REPORT INFORMATION
  Report Type: Spontaneous
  Country: MY (occurrence: MY)
  Receive Date: 20130503
  Receipt Date: 20130503
  Transmission Date: 20140414
  Serious: Yes (Other)
  Sender: FDA-Public Use
  Company Number: MY-PFIZER INC-2013136611

PATIENT
  Age: 64 Year
  Sex: Male

DRUGS (6)
  1. DILANTIN [Suspect]
     Indication: EPILEPSY
     Dosage: 300 MG, 1X/DAY
     Route: 048
  2. GLICLAZIDE [Concomitant]
  3. RANITIDINE [Concomitant]
  4. ALLOPURINOL [Concomitant]
  5. ACARBOSE [Concomitant]
  6. ACETYLSALICYLIC ACID [Concomitant]

REACTIONS (3)
  - Face oedema [Recovered/Resolved]
  - Oedema peripheral [Recovered/Resolved]
  - Pruritus [Recovered/Resolved]
